FAERS Safety Report 21190096 (Version 1)
Quarter: 2022Q3

REPORT INFORMATION
  Report Type: Spontaneous
  Country: US (occurrence: None)
  Receive Date: 20220809
  Receipt Date: 20220809
  Transmission Date: 20221027
  Serious: Yes (Hospitalization)
  Sender: FDA-Public Use
  Company Number: None

PATIENT
  Sex: Male
  Weight: 93.9 kg

DRUGS (10)
  1. ACALABRUTINIB [Suspect]
     Active Substance: ACALABRUTINIB
     Dates: end: 20220727
  2. BENDAMUSTINE HYDROCHLORIDE [Suspect]
     Active Substance: BENDAMUSTINE HYDROCHLORIDE
     Dates: end: 20220702
  3. RITUXIMAB [Suspect]
     Active Substance: RITUXIMAB
     Dates: end: 20220701
  4. BACTRIM DS [Concomitant]
     Active Substance: SULFAMETHOXAZOLE\TRIMETHOPRIM
  5. LORATADINE [Concomitant]
     Active Substance: LORATADINE
  6. OXYCODONE [Concomitant]
     Active Substance: OXYCODONE
  7. ZOFRAN [Concomitant]
     Active Substance: ONDANSETRON HYDROCHLORIDE
  8. ACYCLOVIR [Concomitant]
     Active Substance: ACYCLOVIR
  9. ASPIRIN [Concomitant]
     Active Substance: ASPIRIN
  10. COMPAZINE [Concomitant]
     Active Substance: PROCHLORPERAZINE MALEATE

REACTIONS (1)
  - Perirectal abscess [None]

NARRATIVE: CASE EVENT DATE: 20220727
